FAERS Safety Report 19598069 (Version 1)
Quarter: 2021Q3

REPORT INFORMATION
  Report Type: Spontaneous
  Country: US (occurrence: US)
  Receive Date: 20210722
  Receipt Date: 20210722
  Transmission Date: 20211014
  Serious: No
  Sender: FDA-Public Use
  Company Number: None

PATIENT
  Sex: Female

DRUGS (11)
  1. CETIRIZINE [Concomitant]
     Active Substance: CETIRIZINE HYDROCHLORIDE
  2. LEVALBUTEROL. [Concomitant]
     Active Substance: LEVALBUTEROL
  3. BUDESONIDE. [Concomitant]
     Active Substance: BUDESONIDE
  4. EPANED [Concomitant]
     Active Substance: ENALAPRIL MALEATE
  5. CAROSPIR [Concomitant]
     Active Substance: SPIRONOLACTONE
  6. METOCLOPRAMIDE. [Concomitant]
     Active Substance: METOCLOPRAMIDE
  7. DIGOXIN. [Concomitant]
     Active Substance: DIGOXIN
  8. TADALAFIL. [Concomitant]
     Active Substance: TADALAFIL
  9. TRACLEER [Concomitant]
     Active Substance: BOSENTAN
  10. LETAIRIS [Suspect]
     Active Substance: AMBRISENTAN
     Indication: PULMONARY ARTERIAL HYPERTENSION
     Route: 048
  11. FUROSEMIDE. [Concomitant]
     Active Substance: FUROSEMIDE

REACTIONS (1)
  - Flushing [None]
